FAERS Safety Report 6677105-8 (Version None)
Quarter: 2010Q2

REPORT INFORMATION
  Report Type: 
  Country: None (occurrence: None)
  Receive Date: 20100401
  Receipt Date: 20091120
  Transmission Date: 20101027
  Serious: No
  Sender: FDA-Public Use
  Company Number: 2009-00025

PATIENT
  Age: 64 Year
  Sex: Female
  Weight: 70.3075 kg

DRUGS (2)
  1. COLD REMEDY GEL SWABS [Suspect]
     Dosage: QID, 7 DAYS
     Dates: start: 20090607, end: 20090614
  2. EXTREME CONGESTION RELIEF [Suspect]
     Dosage: QID, 7 DAYS
     Dates: start: 20090607, end: 20090614

REACTIONS (2)
  - AGEUSIA [None]
  - ANOSMIA [None]
